FAERS Safety Report 5722136-5 (Version None)
Quarter: 2008Q2

REPORT INFORMATION
  Report Type: 
  Country: None (occurrence: None)
  Receive Date: 20080429
  Receipt Date: 20070619
  Transmission Date: 20081010
  Serious: No
  Sender: FDA-Public Use
  Company Number: US-ASTRAZENECA-2007UW14624

PATIENT
  Age: 72 Year
  Sex: Male

DRUGS (3)
  1. NEXIUM [Suspect]
     Indication: GASTRITIS
     Route: 048
  2. NEXIUM [Suspect]
     Route: 048
  3. VALIUM [Concomitant]

REACTIONS (5)
  - ABDOMINAL DISTENSION [None]
  - CHEST PAIN [None]
  - EYE SWELLING [None]
  - FATIGUE [None]
  - OEDEMA PERIPHERAL [None]
